FAERS Safety Report 8880215 (Version 1)
Quarter: 2012Q4

REPORT INFORMATION
  Report Type: 
  Country: SE (occurrence: SE)
  Receive Date: 20121101
  Receipt Date: 20121101
  Transmission Date: 20130627
  Serious: Yes (Other)
  Sender: FDA-Public Use
  Company Number: PHHY2012SE096981

PATIENT
  Age: 65 Year
  Sex: Female

DRUGS (9)
  1. SANDIMMUN [Suspect]
  2. THYMOGLOBULIN [Concomitant]
  3. AZATHIOPRINE [Concomitant]
  4. PREDNISOLONE [Concomitant]
  5. CERTICAN [Concomitant]
  6. TACROLIMUS [Concomitant]
  7. AZITHROMYCIN [Concomitant]
  8. STEROIDS COURSE [Concomitant]
  9. CYCLOSPORINE [Concomitant]

REACTIONS (2)
  - Interstitial lung disease [Recovering/Resolving]
  - Glomerular filtration rate decreased [Unknown]
